FAERS Safety Report 7883854-6 (Version None)
Quarter: 2011Q4

REPORT INFORMATION
  Report Type: 
  Country: None (occurrence: None)
  Receive Date: 20111102
  Receipt Date: 20111019
  Transmission Date: 20120403
  Serious: Yes (Hospitalization, Other)
  Sender: FDA-Public Use
  Company Number: US-ELI_LILLY_AND_COMPANY-US201107007189

PATIENT
  Sex: Female

DRUGS (20)
  1. OXYGEN [Concomitant]
     Dosage: 2 L, AT NIGHT
  2. ALBUTEROL SULFATE [Concomitant]
     Dosage: UNK UNK, UNKNOWN
  3. MULTI-VITAMIN [Concomitant]
     Dosage: 1 DF, QD
  4. COMBIVENT [Concomitant]
     Dosage: 2 DF, EVERY 4 OR 6 HOURS
  5. SPIRIVA [Concomitant]
     Dosage: UNK UNK, UNKNOWN
  6. CALTRATE                           /00944201/ [Concomitant]
     Dosage: 500 MG, QD
  7. SYMBICORT [Concomitant]
     Dosage: 2 DF, QD
  8. LIPITOR [Concomitant]
     Dosage: 40 MG, QD
  9. TRAZODONE HYDROCHLORIDE [Concomitant]
     Dosage: 150 MG, QD
  10. AGGRENOX [Concomitant]
     Dosage: 2 DF, QD
  11. BENICAR [Concomitant]
     Dosage: 40 MG, QD
  12. HYDROCODONE BITARTRATE [Concomitant]
     Dosage: UNK UNK, UNKNOWN
     Route: 065
  13. FOSAMAX [Concomitant]
  14. FORTEO [Suspect]
     Indication: OSTEOPOROSIS
     Dosage: 20 UG, QD
     Route: 065
  15. OXYGEN [Concomitant]
     Dosage: 2 L, CONTINUOUS 24 HOURS A DAY
  16. PREDNISONE [Concomitant]
     Dosage: 5 MG, QD
  17. FISH OIL [Concomitant]
     Dosage: 1 DF, QD
  18. CITALOPRAM HYDROBROMIDE [Concomitant]
     Dosage: 40 MG, QD
  19. LYRICA [Concomitant]
     Dosage: 1 DF, BID
  20. NEXIUM [Concomitant]
     Dosage: 40 MG, BID

REACTIONS (5)
  - COMPLICATION OF DEVICE INSERTION [None]
  - SPINAL COMPRESSION FRACTURE [None]
  - HIP FRACTURE [None]
  - PNEUMONIA [None]
  - BACK PAIN [None]
